FAERS Safety Report 19192322 (Version 1)
Quarter: 2021Q2

REPORT INFORMATION
  Report Type: Spontaneous
  Country: MX (occurrence: MX)
  Receive Date: 20210428
  Receipt Date: 20210428
  Transmission Date: 20210717
  Serious: Yes (Other)
  Sender: FDA-Public Use
  Company Number: MX-009507513-2104MEX007573

PATIENT
  Sex: Male
  Weight: 50 kg

DRUGS (1)
  1. ISENTRESS [Suspect]
     Active Substance: RALTEGRAVIR POTASSIUM
     Indication: HIV INFECTION
     Dosage: 2 TABLETS (400 MG) A DAY
     Route: 048

REACTIONS (8)
  - Immunosuppression [Unknown]
  - Decreased appetite [Unknown]
  - Weight decreased [Unknown]
  - Feeling abnormal [Unknown]
  - Product dose omission issue [Unknown]
  - Gastric infection [Unknown]
  - Headache [Unknown]
  - Product availability issue [Unknown]
